FAERS Safety Report 6034833-5 (Version None)
Quarter: 2009Q1

REPORT INFORMATION
  Report Type: 
  Country: None (occurrence: None)
  Receive Date: 20090108
  Receipt Date: 20090106
  Transmission Date: 20090719
  Serious: Yes (Hospitalization, Other)
  Sender: FDA-Public Use
  Company Number: 1000003414

PATIENT
  Age: 39 Year
  Sex: Male

DRUGS (2)
  1. LEXAPRO [Suspect]
     Indication: BIPOLAR DISORDER
     Dosage: 10 MG (10 MG, 1 IN 1 D), ORAL
     Route: 048
     Dates: start: 20060401, end: 20061001
  2. ALCOHOL [Suspect]
     Dosage: ORAL
     Route: 048

REACTIONS (5)
  - ALCOHOL POISONING [None]
  - HERPES ZOSTER [None]
  - IMPRISONMENT [None]
  - SCAR [None]
  - TRIGEMINAL NERVE DISORDER [None]
